FAERS Safety Report 5407390-1 (Version None)
Quarter: 2007Q3

REPORT INFORMATION
  Report Type: 
  Country: None (occurrence: None)
  Receive Date: 20070801
  Receipt Date: 20070723
  Transmission Date: 20080115
  Serious: Yes (Death, Other)
  Sender: FDA-Public Use
  Company Number: TCI2006A00059

PATIENT
  Age: 62 Year
  Sex: Female

DRUGS (15)
  1. ACTOS [Suspect]
     Indication: TYPE 2 DIABETES MELLITUS
     Dosage: 15 MG, 1 IN 1 D) PER ORAL
     Route: 048
     Dates: start: 20041112, end: 20060115
  2. GLUFAT (MITIGLINIDE CALCIUM HYDRATE) [Suspect]
     Indication: TYPE 2 DIABETES MELLITUS
     Dosage: 20 MG (10 MG, 2 IN 1 D0, 30 MG (10 MG, 3 IN 1 D), 10 MG (10 MG, 1 IN 1 D0) PER ORAL
     Route: 048
     Dates: start: 20051117, end: 20051117
  3. GLUFAT (MITIGLINIDE CALCIUM HYDRATE) [Suspect]
     Indication: TYPE 2 DIABETES MELLITUS
     Dosage: 20 MG (10 MG, 2 IN 1 D0, 30 MG (10 MG, 3 IN 1 D), 10 MG (10 MG, 1 IN 1 D0) PER ORAL
     Route: 048
     Dates: start: 20051118, end: 20051227
  4. GLUFAT (MITIGLINIDE CALCIUM HYDRATE) [Suspect]
     Indication: TYPE 2 DIABETES MELLITUS
     Dosage: 20 MG (10 MG, 2 IN 1 D0, 30 MG (10 MG, 3 IN 1 D), 10 MG (10 MG, 1 IN 1 D0) PER ORAL
     Route: 048
     Dates: start: 20051228, end: 20051228
  5. DIOVAN [Suspect]
     Indication: HYPERTENSION
     Dosage: 80 MG (80 MG, 1 IN 1 D) PER ORAL
     Route: 048
     Dates: start: 20021129, end: 20060115
  6. SIMVASTATIN [Suspect]
     Indication: HYPERLIPIDAEMIA
     Dosage: 2.5 MG (2.5 MG, 1 IN 1 D) PER ORAL
     Route: 048
     Dates: start: 19980407, end: 20051214
  7. ZOLPIDEM TARTRATE [Suspect]
     Indication: INSOMNIA
     Dosage: 5 MG, AS REQUIRED PER ORAL
     Route: 048
     Dates: start: 20050520
  8. LOXONIN (LOXOPROFEN SODIUM) [Suspect]
     Dosage: 60 MG, AS REQUIRED PER ORAL
     Route: 048
     Dates: start: 20051203, end: 20060115
  9. MUCOSTA (REBAMIPIDE) [Suspect]
     Indication: GASTRITIS
     Dosage: 100 MG, AS REQUIRED PER ORAL
     Route: 048
     Dates: start: 20051203, end: 20060115
  10. MUCOSTA (REBAMIPIDE) [Suspect]
     Indication: PROPHYLAXIS
     Dosage: 100 MG, AS REQUIRED PER ORAL
     Route: 048
     Dates: start: 20051203, end: 20060115
  11. MYONAL (EPIRISONE HYDROCHLORIDE) [Suspect]
     Indication: BACK PAIN
     Dosage: 50 MG, AS REQUIRED PER ORAL
     Route: 048
     Dates: start: 20051203, end: 20060115
  12. VOLTAREN SUPPO (DICLOFENAC SODIUM) [Concomitant]
  13. HYOSCINE HBR HYT [Concomitant]
  14. FERRISELTZ [Concomitant]
  15. IOPAMIDOL [Concomitant]

REACTIONS (22)
  - ANOREXIA [None]
  - ASCITES [None]
  - BLOOD CHOLESTEROL INCREASED [None]
  - BLOOD KETONE BODY INCREASED [None]
  - BLOOD PRESSURE INCREASED [None]
  - BLOOD URINE PRESENT [None]
  - BRAIN NATRIURETIC PEPTIDE INCREASED [None]
  - CONSTIPATION [None]
  - FREE FATTY ACIDS INCREASED [None]
  - GAIT DISTURBANCE [None]
  - INSOMNIA [None]
  - JAUNDICE CHOLESTATIC [None]
  - LOW DENSITY LIPOPROTEIN INCREASED [None]
  - MALIGNANT ASCITES [None]
  - METASTASES TO KIDNEY [None]
  - METASTASES TO LIVER [None]
  - METASTASES TO LYMPH NODES [None]
  - NOCTURIA [None]
  - PANCREATIC CARCINOMA METASTATIC [None]
  - PLEURAL EFFUSION [None]
  - PYELONEPHRITIS [None]
  - SPINAL OSTEOARTHRITIS [None]
